FAERS Safety Report 13757237 (Version 1)
Quarter: 2017Q3

REPORT INFORMATION
  Report Type: Spontaneous
  Country: US (occurrence: US)
  Receive Date: 20170715
  Receipt Date: 20170715
  Transmission Date: 20171127
  Serious: Yes (Hospitalization, Other)
  Sender: FDA-Public Use
  Company Number: None

PATIENT
  Age: 56 Year
  Sex: Female
  Weight: 129.1 kg

DRUGS (1)
  1. JARDIANCE [Suspect]
     Active Substance: EMPAGLIFLOZIN
     Indication: DIABETES MELLITUS
     Dosage: 30 TABLETS ORAL
     Route: 048
     Dates: end: 20170715

REACTIONS (4)
  - Fungal infection [None]
  - Urinary tract infection [None]
  - Glucose urine present [None]
  - Cystitis [None]
